FAERS Safety Report 10018946 (Version 1)
Quarter: 2014Q1

REPORT INFORMATION
  Report Type: Spontaneous
  Country: US (occurrence: US)
  Receive Date: 20140318
  Receipt Date: 20140318
  Transmission Date: 20141002
  Serious: Yes (Hospitalization)
  Sender: FDA-Public Use
  Company Number: US-GLAXOSMITHKLINE-A1065227A

PATIENT
  Age: 39 Year
  Sex: Male

DRUGS (2)
  1. VENTOLIN [Suspect]
     Indication: MULTIPLE ALLERGIES
     Dosage: 90MCG UNKNOWN
     Route: 055
     Dates: start: 20120623
  2. ADVAIR [Suspect]
     Indication: MULTIPLE ALLERGIES
     Route: 055
     Dates: start: 20120623

REACTIONS (2)
  - Dyspnoea [Unknown]
  - Frustration [Unknown]
